FAERS Safety Report 14245944 (Version 1)
Quarter: 2017Q4

REPORT INFORMATION
  Report Type: Report from Study
  Country: None (occurrence: GB)
  Receive Date: 20171204
  Receipt Date: 20171204
  Transmission Date: 20180321
  Serious: Yes (Hospitalization, Other)
  Sender: FDA-Public Use
  Company Number: GB-ABBVIE-17K-167-2163697-00

PATIENT
  Age: 56 Year
  Sex: Male

DRUGS (2)
  1. DUODOPA [Suspect]
     Active Substance: CARBIDOPA\LEVODOPA
     Indication: PARKINSON^S DISEASE
     Dosage: 100ML CASSETTE, DOSE 3.8
     Route: 050
     Dates: end: 2017
  2. DUODOPA [Suspect]
     Active Substance: CARBIDOPA\LEVODOPA
     Dosage: DOSE 3.5
     Route: 050
     Dates: start: 201711

REACTIONS (11)
  - Sepsis [Unknown]
  - Aphasia [Unknown]
  - Wrong technique in device usage process [Unknown]
  - Gait inability [Unknown]
  - Infection [Unknown]
  - On and off phenomenon [Unknown]
  - Hyperkinesia [Unknown]
  - Bedridden [Unknown]
  - Dysphagia [Unknown]
  - Extra dose administered [Unknown]
  - Muscle twitching [Unknown]

NARRATIVE: CASE EVENT DATE: 201706
